FAERS Safety Report 6598818-2 (Version None)
Quarter: 2010Q1

REPORT INFORMATION
  Report Type: 
  Country: None (occurrence: None)
  Receive Date: 20100217
  Receipt Date: 20100127
  Transmission Date: 20100710
  Serious: Yes (Death, Hospitalization)
  Sender: FDA-Public Use
  Company Number: 2009AC000079

PATIENT
  Age: 29 Year
  Sex: Female
  Weight: 125 kg

DRUGS (32)
  1. DIGOXIN [Suspect]
     Dosage: 0.125 MG;QD; PO
     Route: 048
  2. DIGOXIN [Suspect]
     Dosage: 0.25 MG; QD; PO
     Route: 048
  3. LASIX [Concomitant]
  4. K-DUR [Concomitant]
  5. SPIRONOLACTONE [Concomitant]
  6. TEQUIN [Concomitant]
  7. ROBITUSSIN [Concomitant]
  8. COREG [Concomitant]
  9. ZAROXOLYN [Concomitant]
  10. LIPITOR [Concomitant]
  11. METOPROLOL TARTRATE [Concomitant]
  12. LISINOPRIL [Concomitant]
  13. KAY CIEL DURA-TABS [Concomitant]
  14. PRINIVIL [Concomitant]
  15. CARVEDILOL [Concomitant]
  16. METOLAZONE [Concomitant]
  17. POTASSIUM CHLORIDE [Concomitant]
  18. ZOLPIDEM [Concomitant]
  19. DIPYRIDAMOLE [Concomitant]
  20. MAG OXIDE [Concomitant]
  21. PROPA-N/APAP [Concomitant]
  22. RAMIPRIL [Concomitant]
  23. COUMADIN [Concomitant]
  24. LISINOPRIL [Concomitant]
  25. LASIX [Concomitant]
  26. KLOR-CON [Concomitant]
  27. SPIRONOLACTONE [Concomitant]
  28. COREG [Concomitant]
  29. COUMADIN [Concomitant]
  30. LIPITOR [Concomitant]
  31. CLAFORAN SHOT [Concomitant]
  32. KENALOG [Concomitant]

REACTIONS (46)
  - ABDOMINAL PAIN UPPER [None]
  - ASTHENIA [None]
  - ATRIAL FIBRILLATION [None]
  - BACK PAIN [None]
  - BLOOD CHOLESTEROL INCREASED [None]
  - BLOOD GLUCOSE INCREASED [None]
  - BRONCHITIS [None]
  - CARDIAC FAILURE CONGESTIVE [None]
  - CARDIOMEGALY [None]
  - CARDIOMYOPATHY [None]
  - CHEST DISCOMFORT [None]
  - CHOLECYSTITIS [None]
  - CONDITION AGGRAVATED [None]
  - COUGH [None]
  - DYSPNOEA [None]
  - ECONOMIC PROBLEM [None]
  - FATIGUE [None]
  - FLANK PAIN [None]
  - HAIR GROWTH ABNORMAL [None]
  - HYPERTENSION [None]
  - INFERTILITY [None]
  - INFLUENZA LIKE ILLNESS [None]
  - INSOMNIA [None]
  - INTRACARDIAC THROMBUS [None]
  - LOBAR PNEUMONIA [None]
  - LUNG INFILTRATION [None]
  - MENSTRUATION IRREGULAR [None]
  - MULTIPLE INJURIES [None]
  - MYALGIA [None]
  - NAUSEA [None]
  - ORTHOPNOEA [None]
  - PALPITATIONS [None]
  - POLYCYSTIC OVARIES [None]
  - PRESYNCOPE [None]
  - PULMONARY ARTERIAL PRESSURE INCREASED [None]
  - PYREXIA [None]
  - RENAL CANCER [None]
  - RHINORRHOEA [None]
  - SINUSITIS [None]
  - TUBERCULIN TEST POSITIVE [None]
  - URINARY INCONTINENCE [None]
  - URINARY TRACT INFECTION [None]
  - UTERINE CANCER [None]
  - VENTRICULAR HYPOKINESIA [None]
  - VOMITING [None]
  - WOUND INFECTION [None]
